FAERS Safety Report 5562768-0 (Version None)
Quarter: 2007Q4

REPORT INFORMATION
  Report Type: 
  Country: None (occurrence: None)
  Receive Date: 20071212
  Receipt Date: 20071212
  Transmission Date: 20080405
  Serious: Yes (Other)
  Sender: FDA-Public Use
  Company Number: None

PATIENT
  Age: 56 Year
  Sex: Male
  Weight: 146.0582 kg

DRUGS (1)
  1. LEXAPRO [Suspect]
     Indication: EATING DISORDER
     Dosage: 10MG 1 DAY PO
     Route: 048
     Dates: start: 20071024, end: 20071108

REACTIONS (7)
  - ABNORMAL BEHAVIOUR [None]
  - AGGRESSION [None]
  - AGITATION [None]
  - FATIGUE [None]
  - FEAR [None]
  - LETHARGY [None]
  - THINKING ABNORMAL [None]
